FAERS Safety Report 8991061 (Version 1)
Quarter: 2013Q1

REPORT INFORMATION
  Report Type: Spontaneous
  Country: US (occurrence: None)
  Receive Date: 20121227
  Receipt Date: 20121227
  Transmission Date: 20140127
  Serious: Yes (Hospitalization, Other)
  Sender: FDA-Public Use
  Company Number: None

PATIENT
  Age: 50 Year
  Sex: Male
  Weight: 87.27 kg

DRUGS (12)
  1. RESTASIS [Suspect]
     Indication: PROPHYLAXIS AGAINST GRAFT VERSUS HOST DISEASE
     Route: 047
     Dates: start: 20120628, end: 20121214
  2. RESTASIS [Suspect]
     Indication: EYE DISORDER
     Route: 047
     Dates: start: 20120628, end: 20121214
  3. LEVOFLOXACIN [Concomitant]
  4. VALACYCLOVIR [Concomitant]
  5. LANTUS SOLOSTAR [Concomitant]
  6. ERGOCALCIFEROL (VITAMIN D2) [Concomitant]
  7. NOVOLOG FLEXPEN [Concomitant]
  8. METOPROLOL TARTRATE [Concomitant]
  9. URSODIOL [Concomitant]
  10. FENOFIBRATE TARTRATE 134 MG CAP (ALSO KNOWN AS LOFIBRA) [Concomitant]
  11. ONDANSETRON HCL [Concomitant]
  12. OXYCODONE [Concomitant]

REACTIONS (2)
  - Blindness unilateral [None]
  - Retinal artery occlusion [None]
